FAERS Safety Report 11279750 (Version 1)
Quarter: 2015Q3

REPORT INFORMATION
  Report Type: Spontaneous
  Country: US (occurrence: None)
  Receive Date: 20150716
  Receipt Date: 20150716
  Transmission Date: 20151125
  Serious: Yes (Other)
  Sender: FDA-Public Use
  Company Number: None

PATIENT
  Age: 22 Year
  Sex: Male
  Weight: 104.33 kg

DRUGS (2)
  1. ARIPIPRAZOLE. [Suspect]
     Active Substance: ARIPIPRAZOLE
     Indication: MENTAL DISORDER
     Dosage: ONE PILL 15 MG ONCE DAILY TAKEN BY MOUTH
     Route: 048
     Dates: start: 20150703, end: 20150709
  2. ABILIFY [Concomitant]
     Active Substance: ARIPIPRAZOLE

REACTIONS (5)
  - Drug dose omission [None]
  - Condition aggravated [None]
  - Product substitution issue [None]
  - Aggression [None]
  - Anger [None]

NARRATIVE: CASE EVENT DATE: 20150708
